FAERS Safety Report 8968433 (Version 1)
Quarter: 2012Q4

REPORT INFORMATION
  Report Type: 
  Country: US (occurrence: US)
  Receive Date: 20121218
  Receipt Date: 20121218
  Transmission Date: 20130627
  Serious: No
  Sender: FDA-Public Use
  Company Number: US-BRISTOL-MYERS SQUIBB COMPANY-16376188

PATIENT
  Age: 62 Year
  Sex: Male
  Weight: 122 kg

DRUGS (2)
  1. ABILIFY [Suspect]
     Indication: SCHIZOPHRENIA
     Dosage: Received for years
Prescription No: 409636
  2. ABILIFY [Suspect]
     Indication: MAJOR DEPRESSION
     Dosage: Received for years
Prescription No: 409636

REACTIONS (5)
  - Dizziness [Unknown]
  - Fall [Unknown]
  - Syncope [Unknown]
  - Malaise [Unknown]
  - Disorientation [Unknown]
